FAERS Safety Report 7998242-1 (Version None)
Quarter: 2011Q4

REPORT INFORMATION
  Report Type: 
  Country: None (occurrence: None)
  Receive Date: 20111221
  Receipt Date: 20110511
  Transmission Date: 20120403
  Serious: No
  Sender: FDA-Public Use
  Company Number: US-GLAXOSMITHKLINE-A0927008A

PATIENT
  Age: 59 Year
  Sex: Female

DRUGS (22)
  1. TRAZODONE HCL [Concomitant]
  2. PRILOSEC [Concomitant]
  3. PREDNISONE TAB [Concomitant]
  4. QVAR 40 [Concomitant]
  5. SINGULAIR [Concomitant]
  6. NORCO [Concomitant]
  7. CYCLOBENZAPRINE [Concomitant]
  8. LYRICA [Concomitant]
  9. LIDODERM [Concomitant]
  10. LOVAZA [Suspect]
     Indication: BLOOD CHOLESTEROL INCREASED
     Dosage: 1CAP PER DAY
     Route: 048
     Dates: start: 20110301
  11. BYSTOLIC [Concomitant]
  12. PROAIR HFA [Concomitant]
  13. PLAQUENIL [Concomitant]
  14. OXYCONTIN [Concomitant]
  15. LORAZEPAM [Concomitant]
  16. CEFTIN [Concomitant]
  17. IGG [Concomitant]
  18. ASPIRIN [Concomitant]
  19. VIVELLE [Concomitant]
  20. RECLAST [Concomitant]
  21. CALCIUM + D [Concomitant]
  22. UNKNOWN MEDICATION [Concomitant]

REACTIONS (2)
  - HEADACHE [None]
  - DYSPNOEA [None]
